FAERS Safety Report 7333080-4 (Version None)
Quarter: 2011Q1

REPORT INFORMATION
  Report Type: 
  Country: None (occurrence: None)
  Receive Date: 20110304
  Receipt Date: 20110218
  Transmission Date: 20110831
  Serious: Yes (Death)
  Sender: FDA-Public Use
  Company Number: DE-CELGENEUS-062-21880-11022475

PATIENT
  Age: 21 Year
  Sex: Male

DRUGS (3)
  1. LMWH [Concomitant]
     Indication: PROPHYLAXIS
     Route: 065
  2. ASA [Concomitant]
     Indication: PROPHYLAXIS
     Route: 065
  3. REVLIMID [Suspect]
     Indication: HODGKIN'S DISEASE NODULAR SCLEROSIS REFRACTORY
     Dosage: 25 MILLIGRAM
     Route: 048

REACTIONS (3)
  - HODGKIN'S DISEASE [None]
  - DEATH [None]
  - COUGH [None]
